FAERS Safety Report 6616990-2 (Version None)
Quarter: 2010Q1

REPORT INFORMATION
  Report Type: 
  Country: None (occurrence: None)
  Receive Date: 20100301
  Receipt Date: 20100215
  Transmission Date: 20100710
  Serious: Yes (Other)
  Sender: FDA-Public Use
  Company Number: 1-21669094

PATIENT
  Age: 41 Year
  Sex: Male

DRUGS (1)
  1. LORAZEPAM [Suspect]
     Indication: SUICIDE ATTEMPT
     Dosage: ONCE, ORAL
     Route: 048

REACTIONS (8)
  - BLISTER [None]
  - COMA [None]
  - CONFUSIONAL STATE [None]
  - ERYTHEMA [None]
  - HYPERHIDROSIS [None]
  - OVERDOSE [None]
  - SUICIDE ATTEMPT [None]
  - TACHYCARDIA [None]
